FAERS Safety Report 5738282-6 (Version None)
Quarter: 2008Q2

REPORT INFORMATION
  Report Type: 
  Country: None (occurrence: None)
  Receive Date: 20080514
  Receipt Date: 20080506
  Transmission Date: 20081010
  Serious: Yes (Congenital Anomaly)
  Sender: FDA-Public Use
  Company Number: BE-PFIZER INC-2008039953

PATIENT

DRUGS (3)
  1. VIRACEPT [Suspect]
     Indication: HIV INFECTION
     Route: 064
  2. COMBIVIR [Suspect]
     Indication: HIV INFECTION
     Dosage: TEXT:1 TABLET
     Route: 064
     Dates: start: 20040922
  3. REYATAZ [Suspect]
     Indication: HIV INFECTION
     Route: 064

REACTIONS (3)
  - AORTA HYPOPLASIA [None]
  - DRUG EXPOSURE DURING PREGNANCY [None]
  - FOETAL MALFORMATION [None]
